FAERS Safety Report 18479753 (Version 2)
Quarter: 2020Q4

REPORT INFORMATION
  Report Type: Spontaneous
  Country: IL (occurrence: IL)
  Receive Date: 20201109
  Receipt Date: 20201112
  Transmission Date: 20210114
  Serious: Yes (Other)
  Sender: FDA-Public Use
  Company Number: IL-NOVOPROD-765361

PATIENT
  Age: 75 Year
  Sex: Male

DRUGS (1)
  1. NOVORAPID [Suspect]
     Active Substance: INSULIN ASPART
     Indication: PRODUCT USED FOR UNKNOWN INDICATION
     Dosage: 55 IU, QD (15 IU,14 IU,12 IU,14 IU SEPERATE DOSES FOR 4 TIMES A DAY)
     Route: 058

REACTIONS (2)
  - Cerebrovascular accident [Unknown]
  - Blindness [Unknown]
